FAERS Safety Report 6553414-8 (Version None)
Quarter: 2010Q1

REPORT INFORMATION
  Report Type: 
  Country: None (occurrence: None)
  Receive Date: 20100127
  Receipt Date: 20091027
  Transmission Date: 20100710
  Serious: No
  Sender: FDA-Public Use
  Company Number: A0813624A

PATIENT
  Age: 49 Year
  Sex: Female

DRUGS (9)
  1. IMITREX [Suspect]
     Indication: MIGRAINE
     Route: 058
     Dates: start: 19910101, end: 20000101
  2. IMITREX [Suspect]
     Route: 045
     Dates: start: 20010101, end: 20010101
  3. IMITREX [Suspect]
     Dosage: 50MG AS REQUIRED
     Route: 048
     Dates: start: 20020101
  4. SUMATRIPTAN SUCCINATE [Suspect]
     Indication: MIGRAINE
     Dosage: 100MG AS REQUIRED
     Route: 048
     Dates: start: 20091012
  5. ZOLOFT [Concomitant]
  6. AMITRIPTYLINE HCL [Concomitant]
  7. VERAPAMIL [Concomitant]
  8. ASPIRIN [Concomitant]
  9. BC [Concomitant]

REACTIONS (5)
  - DRUG INEFFECTIVE [None]
  - GAIT DISTURBANCE [None]
  - HEADACHE [None]
  - OEDEMA PERIPHERAL [None]
  - PAIN IN EXTREMITY [None]
